FAERS Safety Report 8181998-5 (Version None)
Quarter: 2012Q1

REPORT INFORMATION
  Report Type: 
  Country: None (occurrence: None)
  Receive Date: 20120302
  Receipt Date: 20120221
  Transmission Date: 20120608
  Serious: Yes (Life-Threatening, Hospitalization)
  Sender: FDA-Public Use
  Company Number: SE-ROCHE-1044966

PATIENT
  Age: 65 Year
  Sex: Male

DRUGS (6)
  1. COZAAR [Concomitant]
  2. ASPIRIN [Concomitant]
     Indication: ATRIAL FIBRILLATION
  3. METOPROLOL SUCCINATE [Concomitant]
  4. FUROSEMIDE [Concomitant]
  5. INSULIN [Concomitant]
  6. ACTIVASE [Suspect]
     Indication: ISCHAEMIC STROKE
     Route: 042
     Dates: start: 20120211, end: 20120211

REACTIONS (3)
  - BLOOD PRESSURE DECREASED [None]
  - RENAL FAILURE [None]
  - HEPATIC FAILURE [None]
